FAERS Safety Report 5340953-0 (Version None)
Quarter: 2007Q2

REPORT INFORMATION
  Report Type: 
  Country: None (occurrence: None)
  Receive Date: 20070405
  Receipt Date: 20070122
  Transmission Date: 20071010
  Serious: No
  Sender: FDA-Public Use
  Company Number: US200701004185

PATIENT
  Age: 53 Year
  Sex: Female

DRUGS (4)
  1. CYMBALTA [Suspect]
     Indication: BIPOLAR I DISORDER
     Dosage: 30 MG, DAILY (1/D), UNK
     Dates: start: 20070110, end: 20070111
  2. ASPIRIN [Concomitant]
  3. XANAX [Concomitant]
  4. SYNTHROID [Concomitant]

REACTIONS (7)
  - DIARRHOEA [None]
  - GASTROINTESTINAL PAIN [None]
  - HANGOVER [None]
  - HEADACHE [None]
  - INFLUENZA LIKE ILLNESS [None]
  - NAUSEA [None]
  - SWOLLEN TONGUE [None]
